FAERS Safety Report 16689221 (Version 1)
Quarter: 2019Q3

REPORT INFORMATION
  Report Type: Spontaneous
  Country: US (occurrence: US)
  Receive Date: 20190809
  Receipt Date: 20190809
  Transmission Date: 20191004
  Serious: Yes (Death)
  Sender: FDA-Public Use
  Company Number: US-AMERICAN REGENT INC-2019001706

PATIENT

DRUGS (1)
  1. MANNITOL INJECTION, USP (4050-25) [Suspect]
     Active Substance: MANNITOL
     Indication: BRAIN NEOPLASM MALIGNANT
     Dosage: UNK
     Route: 013

REACTIONS (3)
  - Incorrect route of product administration [Unknown]
  - Product use in unapproved indication [Unknown]
  - Brain stem stroke [Fatal]
